FAERS Safety Report 10029274 (Version 1)
Quarter: 2014Q1

REPORT INFORMATION
  Report Type: Spontaneous
  Country: DE (occurrence: DE)
  Receive Date: 20140321
  Receipt Date: 20140321
  Transmission Date: 20141002
  Serious: Yes (Hospitalization, Other)
  Sender: FDA-Public Use
  Company Number: GXKR2014DE001288

PATIENT
  Sex: 0

DRUGS (6)
  1. ALLOPURINOL [Suspect]
     Indication: HYPERURICAEMIA
     Dosage: 100 MG, UNK
     Dates: end: 201401
  2. CIPROBAY (CIPROFLOXACIN) [Concomitant]
     Indication: ESCHERICHIA URINARY TRACT INFECTION
     Dosage: 150 MG, UNK
     Dates: start: 201401, end: 201401
  3. NOVALGIN                                /SWE/ [Concomitant]
     Indication: BACK PAIN
     Route: 048
  4. MCP ^HEXAL^ [Concomitant]
     Indication: NAUSEA
     Route: 048
     Dates: start: 201401, end: 201401
  5. PANTOZOL [Concomitant]
     Indication: GASTRITIS
     Route: 042
     Dates: start: 201401, end: 201401
  6. VOMEX A [Concomitant]
     Indication: GASTRITIS
     Dates: start: 201401, end: 201401

REACTIONS (4)
  - Drug-induced liver injury [Recovering/Resolving]
  - Transaminases increased [Recovering/Resolving]
  - Blood alkaline phosphatase increased [Recovering/Resolving]
  - Coagulopathy [Recovering/Resolving]
